FAERS Safety Report 9644463 (Version 2)
Quarter: 2014Q2

REPORT INFORMATION
  Report Type: Spontaneous
  Country: NL (occurrence: NL)
  Receive Date: 20131025
  Receipt Date: 20140402
  Transmission Date: 20141212
  Serious: Yes (Death, Hospitalization, Other)
  Sender: FDA-Public Use
  Company Number: NL-ACTELION-A-CH2013-90246

PATIENT
  Age: 67 Year
  Sex: Male

DRUGS (19)
  1. TRACLEER [Suspect]
     Indication: SCLERODERMA ASSOCIATED DIGITAL ULCER
     Dosage: 62.5 MG, BID
     Route: 048
     Dates: start: 20110419, end: 20130903
  2. TRACLEER [Suspect]
     Indication: PULMONARY ARTERIAL HYPERTENSION
  3. PANTOZOL [Concomitant]
  4. PREDNISONE [Concomitant]
  5. FOLIC ACID [Concomitant]
  6. LASIX [Concomitant]
  7. BISOPROLOL FUMARATE [Concomitant]
  8. TOLBUTAMIDE [Concomitant]
  9. METFORMIN [Concomitant]
  10. CELLCEPT [Concomitant]
  11. ACENOCOUMAROL [Concomitant]
  12. SIMVASTATIN [Concomitant]
  13. OXAZEPAM [Concomitant]
  14. CODEINE [Concomitant]
  15. PERINDOPRIL [Concomitant]
  16. REVATIO [Concomitant]
  17. ALENDRONINEZUUR A [Concomitant]
  18. DOMPERIDON [Concomitant]
  19. BETAMETHASON [Concomitant]

REACTIONS (10)
  - Septic shock [Fatal]
  - Multi-organ failure [Fatal]
  - Pulmonary fibrosis [Fatal]
  - Pulmonary arterial hypertension [Fatal]
  - Liver function test abnormal [Unknown]
  - Pneumonia [Fatal]
  - Alanine aminotransferase increased [Unknown]
  - Aspartate aminotransferase increased [Unknown]
  - Pyrexia [Fatal]
  - Respiratory failure [Fatal]
